FAERS Safety Report 13065870 (Version 2)
Quarter: 2017Q1

REPORT INFORMATION
  Report Type: Spontaneous
  Country: JP (occurrence: JP)
  Receive Date: 20161227
  Receipt Date: 20170203
  Transmission Date: 20170428
  Serious: Yes (Disabling)
  Sender: FDA-Public Use
  Company Number: JP-MALLINCKRODT-T201606657

PATIENT
  Age: 71 Year
  Sex: Male
  Weight: 44 kg

DRUGS (48)
  1. METHADONE [Suspect]
     Active Substance: METHADONE HYDROCHLORIDE
     Dosage: 20 MG (60 MG DAILY DOSE)
     Route: 048
     Dates: start: 20141218, end: 20141224
  2. METHADONE [Suspect]
     Active Substance: METHADONE HYDROCHLORIDE
     Dosage: 70 MG (210 MG DAILY DOSE)
     Route: 048
     Dates: start: 20150917
  3. RANMARK [Concomitant]
     Active Substance: DENOSUMAB
     Indication: ANALGESIC THERAPY
     Dosage: 120 MG
     Route: 051
     Dates: start: 20140501
  4. AMLODIPINE [Concomitant]
     Active Substance: AMLODIPINE BESYLATE
     Dosage: 5 MG, UNK
     Route: 048
  5. POSTERISAN [Concomitant]
     Active Substance: LIDOCAINE
     Dosage: 2 G
     Route: 054
     Dates: end: 20151014
  6. APISTANDIN [Concomitant]
     Dosage: 10 ?G
     Route: 051
     Dates: start: 20150826, end: 20150826
  7. NEUROTROPIN [Concomitant]
     Active Substance: NEUROTROPIN
     Dosage: 3.6 IU
     Route: 051
     Dates: start: 20150812, end: 20150812
  8. METHADONE [Suspect]
     Active Substance: METHADONE HYDROCHLORIDE
     Dosage: 30 MG (90 MG DAILY DOSE)
     Route: 048
     Dates: start: 20141225, end: 20150121
  9. OXINORM [Concomitant]
     Active Substance: OXYCODONE HYDROCHLORIDE
     Indication: ANALGESIC THERAPY
     Dosage: 10 MG, PRN
     Route: 048
     Dates: start: 20141210
  10. CILOSTAZOL. [Concomitant]
     Active Substance: CILOSTAZOL
     Dosage: 50 MG
     Route: 048
  11. DEXART [Concomitant]
     Active Substance: DEXAMETHASONE SODIUM PHOSPHATE
     Dosage: 0.825 MG, UNK
     Route: 051
     Dates: start: 20150826, end: 20150826
  12. APISTANDIN [Concomitant]
     Dosage: 10 ?G
     Route: 051
     Dates: start: 20150812, end: 20150812
  13. OXYCODONE [Concomitant]
     Active Substance: OXYCODONE
     Indication: ANALGESIC THERAPY
     Dosage: 120 MG, UNK
     Route: 048
     Dates: start: 20150205, end: 20150218
  14. LOPEMIN [Concomitant]
     Active Substance: LOPERAMIDE HYDROCHLORIDE
     Dosage: 2 MG
     Route: 048
     Dates: end: 20150218
  15. CARBOCAINE [Concomitant]
     Active Substance: MEPIVACAINE HYDROCHLORIDE
     Dosage: 50 MG
     Route: 051
     Dates: start: 20150812, end: 20150812
  16. NEUROTROPIN [Concomitant]
     Active Substance: NEUROTROPIN
     Dosage: 3.6 IU
     Route: 051
     Dates: start: 20150826, end: 20150826
  17. ROPION [Concomitant]
     Active Substance: FLURBIPROFEN AXETIL
     Dosage: 50 MG
     Route: 042
     Dates: start: 20150819, end: 20150819
  18. LYRICA [Concomitant]
     Active Substance: PREGABALIN
     Indication: ANALGESIC THERAPY
     Dosage: 150 MG, UNK
     Route: 048
  19. OXYCODONE HYDROCHLORIDE HYDRATE [Concomitant]
     Active Substance: OXYCODONE HYDROCHLORIDE
     Indication: ANALGESIC THERAPY
     Dosage: 560 MG, UNK
     Route: 048
     Dates: end: 20141216
  20. SHAKUYAKUKANZOTO [Concomitant]
     Active Substance: HERBALS
     Indication: ANALGESIC THERAPY
     Dosage: 7.5 G
     Route: 048
     Dates: start: 20150723, end: 20150805
  21. XYLOCAINE [Concomitant]
     Active Substance: LIDOCAINE HYDROCHLORIDE
     Dosage: 50 MG
     Route: 051
     Dates: start: 20150819, end: 20150819
  22. CARBOCAINE [Concomitant]
     Active Substance: MEPIVACAINE HYDROCHLORIDE
     Dosage: 50 MG
     Route: 051
     Dates: start: 20150819, end: 20150819
  23. CARBOCAINE [Concomitant]
     Active Substance: MEPIVACAINE HYDROCHLORIDE
     Dosage: 50 MG
     Route: 051
     Dates: start: 20150826, end: 20150826
  24. ROPION [Concomitant]
     Active Substance: FLURBIPROFEN AXETIL
     Indication: ANALGESIC THERAPY
     Dosage: 50 MG
     Route: 042
     Dates: start: 20150812, end: 20150812
  25. METHADONE [Suspect]
     Active Substance: METHADONE HYDROCHLORIDE
     Indication: CANCER PAIN
     Dosage: 10 MG (30 MG DAILY DOSE)
     Route: 048
     Dates: start: 20141211, end: 20141217
  26. APISTANDIN [Concomitant]
     Dosage: 10 ?G
     Route: 051
     Dates: start: 20150819, end: 20150819
  27. METHADONE [Suspect]
     Active Substance: METHADONE HYDROCHLORIDE
     Dosage: 40 MG (120 MG DAILY DOSE)
     Route: 048
     Dates: start: 20150709, end: 20150722
  28. OXYCODONE HYDROCHLORIDE HYDRATE [Concomitant]
     Active Substance: OXYCODONE HYDROCHLORIDE
     Dosage: 320 MG, UNK
     Route: 048
     Dates: start: 20141225, end: 20150121
  29. REBAMIPIDE [Concomitant]
     Active Substance: REBAMIPIDE
     Dosage: 300 MG, UNK
     Route: 048
  30. CRAVIT [Concomitant]
     Active Substance: LEVOFLOXACIN
     Dosage: 500 MG, UNK
     Route: 048
     Dates: start: 20150611, end: 20150701
  31. XYLOCAINE [Concomitant]
     Active Substance: LIDOCAINE HYDROCHLORIDE
     Dosage: 50 MG
     Route: 051
     Dates: start: 20150805, end: 20150805
  32. ROPION [Concomitant]
     Active Substance: FLURBIPROFEN AXETIL
     Dosage: 50 MG
     Route: 042
     Dates: start: 20150826, end: 20150826
  33. METHADONE [Suspect]
     Active Substance: METHADONE HYDROCHLORIDE
     Dosage: 35 MG (105 MG DAILY DOSE)
     Route: 048
     Dates: start: 20150122, end: 20150708
  34. METHADONE [Suspect]
     Active Substance: METHADONE HYDROCHLORIDE
     Dosage: 60 MG (180 MG DAILY DOSE)
     Route: 048
     Dates: start: 20150806, end: 20150916
  35. VOTRIENT [Concomitant]
     Active Substance: PAZOPANIB HYDROCHLORIDE
     Dosage: 800 MG, UNK
     Route: 048
  36. LOXOPROFEN [Concomitant]
     Active Substance: LOXOPROFEN
     Indication: ANALGESIC THERAPY
     Dosage: 180 MG, UNK
     Route: 048
  37. DENOTAS [Concomitant]
     Active Substance: CALCIUM CARBONATE\CHOLECALCIFEROL\MAGNESIUM CARBONATE
     Dosage: 2 DF
     Route: 048
  38. OXYCODONE HYDROCHLORIDE HYDRATE [Concomitant]
     Active Substance: OXYCODONE HYDROCHLORIDE
     Dosage: 480 MG, UNK
     Route: 048
     Dates: start: 20141217, end: 20141224
  39. OXYCONTIN [Concomitant]
     Active Substance: OXYCODONE HYDROCHLORIDE
     Indication: ANALGESIC THERAPY
     Dosage: 240 MG, UNK
     Route: 048
     Dates: start: 20150122, end: 20150204
  40. DEXART [Concomitant]
     Active Substance: DEXAMETHASONE SODIUM PHOSPHATE
     Dosage: 0.825 MG
     Route: 051
     Dates: start: 20150805, end: 20150805
  41. CARBOCAINE [Concomitant]
     Active Substance: MEPIVACAINE HYDROCHLORIDE
     Dosage: 50 MG
     Route: 051
     Dates: start: 20150805, end: 20150805
  42. APISTANDIN [Concomitant]
     Indication: ANALGESIC THERAPY
     Dosage: 10 ?G
     Route: 051
     Dates: start: 20150805, end: 20150805
  43. NEUROTROPIN [Concomitant]
     Active Substance: NEUROTROPIN
     Dosage: 3.6 IU
     Route: 051
     Dates: start: 20150819, end: 20150819
  44. METHADONE [Suspect]
     Active Substance: METHADONE HYDROCHLORIDE
     Dosage: 50 MG (150 MG DAILY DOSE)
     Route: 048
     Dates: start: 20150723, end: 20150805
  45. CALONAL [Concomitant]
     Active Substance: ACETAMINOPHEN
     Indication: ANALGESIC THERAPY
     Dosage: 1200 MG, UNK
     Route: 048
  46. XYLOCAINE [Concomitant]
     Active Substance: LIDOCAINE HYDROCHLORIDE
     Dosage: 50 MG
     Route: 051
     Dates: start: 20150812, end: 20150812
  47. XYLOCAINE [Concomitant]
     Active Substance: LIDOCAINE HYDROCHLORIDE
     Dosage: 50 MG
     Route: 051
     Dates: start: 20150826, end: 20150826
  48. NEUROTROPIN [Concomitant]
     Active Substance: NEUROTROPIN
     Indication: ANALGESIC THERAPY
     Dosage: 3.6 IU
     Route: 051
     Dates: start: 20150805, end: 20150805

REACTIONS (3)
  - Skin disorder [Not Recovered/Not Resolved]
  - Osteonecrosis of jaw [Not Recovered/Not Resolved]
  - Urinary tract infection [Recovering/Resolving]

NARRATIVE: CASE EVENT DATE: 20150514
